FAERS Safety Report 4586853-5 (Version None)
Quarter: 2005Q1

REPORT INFORMATION
  Report Type: 
  Country: None (occurrence: None)
  Receive Date: 20050217
  Receipt Date: 20050217
  Transmission Date: 20050727
  Serious: Yes (Other)
  Sender: FDA-Public Use
  Company Number: None

PATIENT
  Age: 43 Year
  Sex: Female
  Weight: 79.3795 kg

DRUGS (1)
  1. ZOLOFT [Suspect]

REACTIONS (3)
  - ABNORMAL BEHAVIOUR [None]
  - MENTAL DISORDER [None]
  - THINKING ABNORMAL [None]
